FAERS Safety Report 6631458-5 (Version None)
Quarter: 2010Q1

REPORT INFORMATION
  Report Type: 
  Country: None (occurrence: None)
  Receive Date: 20100312
  Receipt Date: 20100306
  Transmission Date: 20100710
  Serious: Yes (Hospitalization)
  Sender: FDA-Public Use
  Company Number: US-RB-024912-09

PATIENT
  Age: 56 Year
  Sex: Female

DRUGS (1)
  1. SUBOXONE [Suspect]
     Indication: DRUG USE FOR UNKNOWN INDICATION
     Dosage: UNKNOWN DOSING INFORMATION
     Route: 065

REACTIONS (10)
  - ARTHRITIS [None]
  - CONSTIPATION [None]
  - DENTAL CARIES [None]
  - DEPRESSION [None]
  - DRUG DEPENDENCE [None]
  - HEADACHE [None]
  - INSOMNIA [None]
  - IRRITABILITY [None]
  - JOINT SWELLING [None]
  - OEDEMA PERIPHERAL [None]
